FAERS Safety Report 9550860 (Version 1)
Quarter: 2013Q3

REPORT INFORMATION
  Report Type: Spontaneous
  Country: US (occurrence: US)
  Receive Date: 20130924
  Receipt Date: 20130924
  Transmission Date: 20140515
  Serious: No
  Sender: FDA-Public Use
  Company Number: US-SANOFI-AVENTIS-2013SA039836

PATIENT
  Age: 48 Year
  Sex: Female
  Weight: 65 kg

DRUGS (14)
  1. AUBAGIO [Suspect]
     Indication: MULTIPLE SCLEROSIS
     Dosage: AT BED TIME
     Route: 048
     Dates: start: 20130410
  2. AUBAGIO [Suspect]
     Indication: MULTIPLE SCLEROSIS
     Dosage: AT BED TIME
     Route: 048
     Dates: start: 20130410
  3. CYCLOBENZAPRINE [Concomitant]
     Indication: MUSCULOSKELETAL STIFFNESS
     Route: 065
     Dates: start: 201304
  4. CYCLOBENZAPRINE [Concomitant]
     Indication: MUSCLE RELAXANT THERAPY
     Route: 065
     Dates: start: 201304
  5. GABAPENTIN [Concomitant]
     Indication: MUSCLE SPASMS
     Route: 048
     Dates: start: 2000
  6. GABAPENTIN [Concomitant]
     Indication: PAIN
     Route: 048
     Dates: start: 2000
  7. BACLOFEN [Concomitant]
     Indication: MUSCLE RELAXANT THERAPY
     Route: 048
     Dates: start: 2004
  8. DIOVAN HCT [Concomitant]
     Indication: HYPERTENSION
     Route: 065
     Dates: start: 2006
  9. ATORVASTATIN [Concomitant]
     Indication: BLOOD CHOLESTEROL DECREASED
     Route: 065
     Dates: start: 2011
  10. ATORVASTATIN [Concomitant]
     Indication: BLOOD CHOLESTEROL INCREASED
     Route: 065
     Dates: start: 2011
  11. OXYBUTYNIN [Concomitant]
     Indication: HYPERTONIC BLADDER
     Route: 065
     Dates: start: 2003
  12. FAMPRIDINE [Concomitant]
     Indication: GAIT DISTURBANCE
     Route: 065
     Dates: start: 2011
  13. FLUOXETINE [Concomitant]
     Indication: DEPRESSION
     Route: 065
     Dates: start: 2000, end: 201304
  14. VALSARTAN/HYDROCHLOROTHIAZIDE [Concomitant]
     Indication: HYPERTENSION
     Dosage: DOSE:160-12.5 MG
     Route: 065
     Dates: start: 2013

REACTIONS (9)
  - Muscular weakness [Not Recovered/Not Resolved]
  - Arthropathy [Not Recovered/Not Resolved]
  - Dizziness [Not Recovered/Not Resolved]
  - Fall [Not Recovered/Not Resolved]
  - Contusion [Not Recovered/Not Resolved]
  - Mobility decreased [Not Recovered/Not Resolved]
  - Nodule [Not Recovered/Not Resolved]
  - Pain [Not Recovered/Not Resolved]
  - Alopecia [Not Recovered/Not Resolved]
